FAERS Safety Report 9501838 (Version 1)
Quarter: 2013Q1

REPORT INFORMATION
  Report Type: Spontaneous
  Country: US (occurrence: None)
  Receive Date: 20130107
  Receipt Date: 20130107
  Transmission Date: 20140127
  Serious: No
  Sender: FDA-Public Use
  Company Number: PHEH2012US022725

PATIENT
  Sex: Female

DRUGS (10)
  1. GILENYA [Suspect]
     Indication: MULTIPLE SCLEROSIS
     Route: 048
     Dates: start: 20110714
  2. BACLOFEN (BACLOFEN) [Concomitant]
  3. CLONAZEPAM (CLONAZEPAM) [Concomitant]
  4. FLUTICASONE (FLUTICASONE) NASAL SPRAY [Concomitant]
  5. FULVISAN (FULVISAN) [Concomitant]
  6. IBUPROFEN (IBUPROFEN) [Concomitant]
  7. OMEPRAZOLE (OMEPRAZOLE) [Concomitant]
  8. SERTRALINE (SERTRALINE) [Concomitant]
  9. VALTREX (VALACICLOVIR HYDROCHLORIDE) [Concomitant]
  10. ZOLPIDEM (ZOLPIDEM) [Concomitant]

REACTIONS (2)
  - Musculoskeletal disorder [None]
  - Gait disturbance [None]
